FAERS Safety Report 5786002-1 (Version None)
Quarter: 2008Q2

REPORT INFORMATION
  Report Type: 
  Country: None (occurrence: None)
  Receive Date: 20080624
  Receipt Date: 20080624
  Transmission Date: 20081010
  Serious: Yes (Hospitalization)
  Sender: FDA-Public Use
  Company Number: PHHO2007PE09892

PATIENT
  Sex: Male
  Weight: 72 kg

DRUGS (2)
  1. SPH100 SPH+TAB [Suspect]
     Indication: ESSENTIAL HYPERTENSION
     Dosage: 300/25MG, QD
     Route: 048
     Dates: start: 20070404, end: 20070529
  2. ALISKIREN [Suspect]
     Indication: ESSENTIAL HYPERTENSION
     Route: 048

REACTIONS (6)
  - ABDOMINAL PAIN [None]
  - CHOLECYSTITIS CHRONIC [None]
  - CHOLELITHIASIS [None]
  - DISEASE PROGRESSION [None]
  - DIZZINESS [None]
  - SURGERY [None]
